FAERS Safety Report 26162609 (Version 2)
Quarter: 2025Q4

REPORT INFORMATION
  Report Type: Spontaneous
  Country: EU (occurrence: EU)
  Receive Date: 20251216
  Receipt Date: 20251217
  Transmission Date: 20260117
  Serious: Yes (Death, Life-Threatening)
  Sender: SANDOZ
  Company Number: EU-SAMSUNG BIOEPIS-SB-2025-39808

PATIENT
  Age: 78 Year
  Sex: Female

DRUGS (6)
  1. INFLIXIMAB [Suspect]
     Active Substance: INFLIXIMAB
     Indication: Lung squamous cell carcinoma stage IV
     Dosage: UNK
     Route: 065
     Dates: start: 20250520
  2. INFLIXIMAB [Suspect]
     Active Substance: INFLIXIMAB
     Indication: Idiopathic pulmonary fibrosis
  3. MYCOPHENOLATE MOFETIL [Suspect]
     Active Substance: MYCOPHENOLATE MOFETIL
     Indication: Lung squamous cell carcinoma stage IV
     Dosage: UNK
     Route: 065
     Dates: start: 20250519
  4. MYCOPHENOLATE MOFETIL [Suspect]
     Active Substance: MYCOPHENOLATE MOFETIL
     Indication: Idiopathic pulmonary fibrosis
  5. PEMBROLIZUMAB [Suspect]
     Active Substance: PEMBROLIZUMAB
     Indication: Lung squamous cell carcinoma stage IV
     Dosage: 200 MG, Q3W
     Route: 042
     Dates: start: 20250424
  6. PEMBROLIZUMAB [Suspect]
     Active Substance: PEMBROLIZUMAB
     Indication: Idiopathic pulmonary fibrosis

REACTIONS (3)
  - Immune-mediated lung disease [Fatal]
  - Acute respiratory distress syndrome [Fatal]
  - Off label use [Unknown]
